FAERS Safety Report 5645458-5 (Version None)
Quarter: 2008Q1

REPORT INFORMATION
  Report Type: 
  Country: None (occurrence: None)
  Receive Date: 20080229
  Receipt Date: 20070831
  Transmission Date: 20080703
  Serious: No
  Sender: FDA-Public Use
  Company Number: US-BRISTOL-MYERS SQUIBB COMPANY-13802178

PATIENT
  Age: 56 Year
  Sex: Female

DRUGS (5)
  1. TAXOL [Suspect]
     Indication: BREAST CANCER
     Dosage: 350MG DOSES ON 12-JUL-2002,02-AUG-2002,23-AUG-2002,AND LAST DOSE ON 13-SEP-2002.
     Route: 042
     Dates: end: 20020913
  2. ANZEMET [Concomitant]
  3. DECADRON [Concomitant]
  4. TAGAMET [Concomitant]
  5. BENADRYL [Concomitant]

REACTIONS (1)
  - BONE PAIN [None]
